FAERS Safety Report 6741030-4 (Version None)
Quarter: 2010Q2

REPORT INFORMATION
  Report Type: 
  Country: None (occurrence: None)
  Receive Date: 20100526
  Receipt Date: 20100521
  Transmission Date: 20101027
  Serious: Yes (Hospitalization)
  Sender: FDA-Public Use
  Company Number: FR-WYE-G06158110

PATIENT
  Sex: Male
  Weight: 42 kg

DRUGS (5)
  1. ADVIL LIQUI-GELS [Suspect]
     Indication: INFLUENZA LIKE ILLNESS
     Route: 048
     Dates: start: 20080205, end: 20080217
  2. EFFERALGAN [Concomitant]
     Indication: INFLUENZA LIKE ILLNESS
     Dosage: UNKNOWN
     Route: 048
     Dates: start: 20080214
  3. AMOXICILLIN AND CLAVULANATE POTASSIUM [Concomitant]
     Indication: INFLUENZA LIKE ILLNESS
     Dosage: UNKNOWN
     Route: 048
     Dates: start: 20080214, end: 20080217
  4. ASPEGIC 1000 [Suspect]
     Indication: INFLUENZA LIKE ILLNESS
     Route: 048
     Dates: start: 20080214, end: 20080217
  5. DOMPERIDONE [Concomitant]
     Indication: INFLUENZA LIKE ILLNESS
     Dosage: UNKNOWN
     Route: 048
     Dates: start: 20080214, end: 20080217

REACTIONS (7)
  - ABDOMINAL PAIN [None]
  - DIZZINESS [None]
  - DUODENAL ULCER HAEMORRHAGE [None]
  - HAEMATEMESIS [None]
  - HEADACHE [None]
  - MALAISE [None]
  - PLATELET COUNT DECREASED [None]
